FAERS Safety Report 21421550 (Version 2)
Quarter: 2022Q4

REPORT INFORMATION
  Report Type: Spontaneous
  Country: DE (occurrence: DE)
  Receive Date: 20221007
  Receipt Date: 20221011
  Transmission Date: 20230112
  Serious: Yes (Hospitalization)
  Sender: FDA-Public Use
  Company Number: DE-ADRED-07986-01

PATIENT
  Age: 52 Year
  Sex: Male
  Weight: 80 kg

DRUGS (14)
  1. DULOXETINE HYDROCHLORIDE [Interacting]
     Active Substance: DULOXETINE HYDROCHLORIDE
     Indication: Product used for unknown indication
     Dosage: 30 MG, UNKNOWN
     Route: 048
  2. ASPIRIN [Interacting]
     Active Substance: ASPIRIN
     Indication: Product used for unknown indication
     Dosage: 100 MG, OTHER
     Route: 048
  3. HYDROCORTISONE [Interacting]
     Active Substance: HYDROCORTISONE
     Indication: Product used for unknown indication
     Dosage: 10 MG, OTHER
     Route: 048
  4. FOLIC ACID [Concomitant]
     Active Substance: FOLIC ACID
     Indication: Product used for unknown indication
     Dosage: 5 MG, UNKNOWN
     Route: 048
  5. NEURO-RATIOPHARM N [Concomitant]
     Indication: Product used for unknown indication
     Dosage: UNK
     Route: 048
  6. CPS [Concomitant]
     Indication: Product used for unknown indication
     Dosage: UNK
     Route: 048
  7. METAMIZOLE [Concomitant]
     Active Substance: METAMIZOLE
     Indication: Product used for unknown indication
     Dosage: 500 MG, OTHER
     Route: 048
  8. VALSARTAN [Concomitant]
     Active Substance: VALSARTAN
     Indication: Product used for unknown indication
     Dosage: 80 MG, OTHER
     Route: 048
  9. CALCITRIOL [Concomitant]
     Active Substance: CALCITRIOL
     Indication: Product used for unknown indication
     Dosage: 0.5 UG, OTHER
     Route: 048
  10. FOSRENOL [Concomitant]
     Active Substance: LANTHANUM CARBONATE
     Indication: Product used for unknown indication
     Dosage: 1000 MG, OTHER
     Route: 048
  11. PANTOPRAZOLE [Concomitant]
     Active Substance: PANTOPRAZOLE
     Indication: Product used for unknown indication
     Dosage: 40 MG, OTHER
     Route: 048
  12. METOPROLOL [Concomitant]
     Active Substance: METOPROLOL
     Indication: Product used for unknown indication
     Dosage: 95 MG, OTHER
     Route: 048
  13. CHOLECALCIFEROL [Concomitant]
     Active Substance: CHOLECALCIFEROL
     Indication: Product used for unknown indication
     Dosage: 20000 U, OTHER
     Route: 048
  14. CALCIUM ACETATE [Concomitant]
     Active Substance: CALCIUM ACETATE
     Indication: Product used for unknown indication
     Dosage: 80 MG, OTHER
     Route: 048

REACTIONS (7)
  - Diverticulitis [Unknown]
  - Pyrexia [Unknown]
  - Anaemia [Unknown]
  - Labelled drug-drug interaction medication error [Unknown]
  - Abdominal pain lower [Unknown]
  - Haemorrhagic ovarian cyst [Unknown]
  - Chills [Unknown]
